FAERS Safety Report 5750400-2 (Version None)
Quarter: 2008Q2

REPORT INFORMATION
  Report Type: 
  Country: None (occurrence: None)
  Receive Date: 20080528
  Receipt Date: 20080522
  Transmission Date: 20081010
  Serious: Yes (Other)
  Sender: FDA-Public Use
  Company Number: IE-WYE-G01572808

PATIENT
  Sex: Female

DRUGS (1)
  1. EFFEXOR [Suspect]
     Dates: end: 20080501

REACTIONS (3)
  - CHEST PAIN [None]
  - DIZZINESS [None]
  - DRUG WITHDRAWAL SYNDROME [None]
